FAERS Safety Report 5083601-X (Version None)
Quarter: 2006Q3

REPORT INFORMATION
  Report Type: 
  Country: None (occurrence: None)
  Receive Date: 20060818
  Receipt Date: 20060808
  Transmission Date: 20061208
  Serious: Yes (Hospitalization)
  Sender: FDA-Public Use
  Company Number: FR-GLAXOSMITHKLINE-B0433634A

PATIENT
  Age: 44 Year
  Sex: Female

DRUGS (1)
  1. TRIZIVIR [Suspect]
     Indication: HIV INFECTION
     Dosage: 2UNIT PER DAY
     Route: 048
     Dates: start: 20060107, end: 20060126

REACTIONS (4)
  - ASTHENIA [None]
  - FACE OEDEMA [None]
  - RASH PRURITIC [None]
  - SLEEP DISORDER [None]
